FAERS Safety Report 9058667 (Version 1)
Quarter: 2013Q1

REPORT INFORMATION
  Report Type: Not Available
  Country: GB (occurrence: GB)
  Receive Date: 20130204
  Receipt Date: 20130204
  Transmission Date: 20140127
  Serious: Yes (Hospitalization)
  Sender: FDA-Public Use
  Company Number: GB-NAPPMUNDI-GBR-2013-0013101

PATIENT
  Sex: Male

DRUGS (4)
  1. MORPHINE SULFATE [Suspect]
     Indication: PRODUCT USED FOR UNKNOWN INDICATION
     Route: 065
  2. AMITRIPTYLINE [Suspect]
     Indication: SEDATIVE THERAPY
     Dosage: 60 MG, UNK
     Route: 065
  3. TILODENE [Suspect]
     Indication: PRODUCT USED FOR UNKNOWN INDICATION
     Route: 065
  4. ANTACIDS [Concomitant]

REACTIONS (2)
  - Neuralgia [Unknown]
  - Decreased appetite [Unknown]
